FAERS Safety Report 20354403 (Version 2)
Quarter: 2023Q1

REPORT INFORMATION
  Report Type: Other
  Country: CA (occurrence: CA)
  Receive Date: 20220120
  Receipt Date: 20230118
  Transmission Date: 20230418
  Serious: Yes (Other)
  Sender: FDA-Public Use
  Company Number: CA-GLENMARK PHARMACEUTICALS-2022GMK069807

PATIENT

DRUGS (8)
  1. URSODIOL [Suspect]
     Active Substance: URSODIOL
     Indication: Prophylaxis against transplant rejection
     Dosage: UNK
     Route: 065
  2. URSODIOL [Suspect]
     Active Substance: URSODIOL
     Indication: Immunosuppressant drug therapy
     Dosage: UNK
     Route: 065
  3. DASATINIB [Suspect]
     Active Substance: DASATINIB
     Indication: Chronic myeloid leukaemia
     Dosage: 50 MILLIGRAM, 1 EVERY 1 DAYS
     Route: 065
  4. MESALAMINE [Suspect]
     Active Substance: MESALAMINE
     Indication: Prophylaxis against transplant rejection
     Dosage: UNK
     Route: 065
  5. PREDNISONE [Suspect]
     Active Substance: PREDNISONE
     Indication: Immunosuppression
     Dosage: UNK
     Route: 065
  6. PREDNISONE [Suspect]
     Active Substance: PREDNISONE
     Indication: Immunosuppressant drug therapy
     Dosage: UNK
     Route: 065
  7. TACROLIMUS [Suspect]
     Active Substance: TACROLIMUS
     Indication: Immunosuppression
     Dosage: UNK
     Route: 065
  8. TACROLIMUS [Suspect]
     Active Substance: TACROLIMUS
     Indication: Immunosuppressant drug therapy
     Dosage: UNK
     Route: 065

REACTIONS (6)
  - General physical health deterioration [Recovered/Resolved]
  - Loss of personal independence in daily activities [Recovered/Resolved]
  - Philadelphia positive chronic myeloid leukaemia [Recovered/Resolved]
  - Pain [Recovered/Resolved]
  - Thrombocytopenia [Recovered/Resolved]
  - Product use in unapproved indication [Unknown]
